FAERS Safety Report 7771882-0 (Version None)
Quarter: 2011Q3

REPORT INFORMATION
  Report Type: 
  Country: None (occurrence: None)
  Receive Date: 20110922
  Receipt Date: 20100908
  Transmission Date: 20111222
  Serious: No
  Sender: FDA-Public Use
  Company Number: US-ASTRAZENECA-2010SE42192

PATIENT
  Age: 51 Year
  Sex: Male
  Weight: 99.8 kg

DRUGS (3)
  1. SEROQUEL [Suspect]
     Route: 048
     Dates: start: 20080101
  2. ASPIRIN [Concomitant]
     Dosage: 1-2 TABLETS DAILY
  3. SEROQUEL [Suspect]
     Route: 048
     Dates: start: 20040101

REACTIONS (3)
  - TENSION [None]
  - ANXIETY [None]
  - DRUG EFFECT DECREASED [None]
